FAERS Safety Report 12994092 (Version 1)
Quarter: 2016Q4

REPORT INFORMATION
  Report Type: Spontaneous
  Country: US (occurrence: US)
  Receive Date: 20161202
  Receipt Date: 20161202
  Transmission Date: 20170207
  Serious: No
  Sender: FDA-Public Use
  Company Number: US-PFIZER INC-2016556190

PATIENT
  Age: 50 Year
  Sex: Female

DRUGS (5)
  1. LYRICA [Suspect]
     Active Substance: PREGABALIN
     Indication: DIABETIC NEUROPATHY
     Dosage: 25 MG, 3X/DAY
     Route: 048
     Dates: start: 201610, end: 20161101
  2. NOVOLIN N [Concomitant]
     Active Substance: INSULIN HUMAN
     Indication: DIABETES MELLITUS
     Dosage: 12 UNITS IN THE MORNING, 10 UNITS IN THE AFTERNOON AND 10 UNITS AROUND 9 O^CLOCK AT NIGHT
  3. NOVOLIN R [Concomitant]
     Active Substance: INSULIN HUMAN
     Indication: DIABETES MELLITUS
     Dosage: 4 IU, 2X/DAY (FREQUENCY ON A SLIDING SCALE ACCORDING TO WHAT HER BLOOD READS)
  4. DEPAKOTE [Concomitant]
     Active Substance: DIVALPROEX SODIUM
     Indication: SEIZURE
     Dosage: 3500 MG, DAILY (3 OF THEM (500 MG) IN THE MORNING AND 4 OF THEM (500 MG) IN THE EVENING)
  5. CARBATROL [Concomitant]
     Active Substance: CARBAMAZEPINE
     Indication: SEIZURE
     Dosage: 600 MG, 2X/DAY (300 MG, 2 IN THE MORNING AND 2 AT NIGHT)

REACTIONS (3)
  - Insomnia [Recovered/Resolved]
  - Somnolence [Recovered/Resolved]
  - Swelling [Recovered/Resolved]
